FAERS Safety Report 9034392 (Version 1)
Quarter: 2013Q1

REPORT INFORMATION
  Report Type: Spontaneous
  Country: US (occurrence: None)
  Receive Date: 20130116
  Receipt Date: 20130116
  Transmission Date: 20140127
  Serious: Yes (Disabling, Other)
  Sender: FDA-Public Use
  Company Number: None

PATIENT
  Age: 18 Year
  Sex: Female
  Weight: 48.54 kg

DRUGS (2)
  1. ZANAFLEX [Suspect]
     Indication: MUSCLE TIGHTNESS
     Dosage: 2 TABS  AT BEDTIME  PO
     Route: 048
     Dates: start: 20121006, end: 20121220
  2. LUVOX (FLUVOXAMINE) [Suspect]
     Indication: OBSESSIVE-COMPULSIVE DISORDER
     Dosage: 1 TAB  TWICE DAILY  PO
     Route: 048

REACTIONS (7)
  - Orthostatic hypotension [None]
  - Dizziness [None]
  - Convulsion [None]
  - Syncope [None]
  - Drug interaction [None]
  - Osteonecrosis [None]
  - Dysstasia [None]
